FAERS Safety Report 4269829-7 (Version None)
Quarter: 2004Q1

REPORT INFORMATION
  Report Type: 
  Country: None (occurrence: None)
  Receive Date: 20040112
  Receipt Date: 20040105
  Transmission Date: 20041129
  Serious: Yes (Other)
  Sender: FDA-Public Use
  Company Number: 2003185791US

PATIENT
  Sex: Male

DRUGS (1)
  1. GENOTROPIN [Suspect]

REACTIONS (1)
  - CONVULSION [None]
